FAERS Safety Report 17663020 (Version 1)
Quarter: 2020Q2

REPORT INFORMATION
  Report Type: Spontaneous
  Country: US (occurrence: US)
  Receive Date: 20200413
  Receipt Date: 20200413
  Transmission Date: 20200713
  Serious: No
  Sender: FDA-Public Use
  Company Number: US-BAUSCH-BL-2020-008602

PATIENT
  Age: 54 Year
  Sex: Male

DRUGS (3)
  1. ASACOL HD [Suspect]
     Active Substance: MESALAMINE
     Indication: COLITIS ULCERATIVE
     Dosage: STOPPED ON AN UNKNOWN DATE IN IN PAST
     Route: 065
  2. ASACOL HD [Suspect]
     Active Substance: MESALAMINE
     Dosage: RE-STARTED ON AN UNKNOWN DATE
     Route: 065
  3. APRISO [Suspect]
     Active Substance: MESALAMINE
     Indication: COLITIS ULCERATIVE
     Dosage: STARTED ON AN UNKNOWN DATE ABOUT 9 YEARS AFTER BEING DIAGNOSED WITH ULCERATIVE COLITIS
     Route: 065

REACTIONS (3)
  - Insurance issue [Unknown]
  - Therapy interrupted [Unknown]
  - Malaise [Unknown]
